FAERS Safety Report 7920143 (Version 7)
Quarter: 2014Q2

REPORT INFORMATION
  Report Type: Report from Study
  Country: CA (occurrence: CA)
  Receive Date: 20110429
  Receipt Date: 20140623
  Transmission Date: 20141212
  Serious: Yes (Hospitalization, Other)
  Sender: FDA-Public Use
  Company Number: PHHY2009CA19261

PATIENT
  Sex: Female

DRUGS (3)
  1. SANDOSTATIN LAR [Suspect]
     Indication: PANCREATIC NEUROENDOCRINE TUMOUR
     Dosage: 40 MG, QMO
     Route: 030
     Dates: start: 20080721
  2. SANDOSTATIN LAR [Suspect]
     Dosage: 30 MG, QMO
     Route: 030
  3. SANDOSTATIN LAR [Suspect]
     Dosage: 40 MG, QMO
     Route: 030

REACTIONS (9)
  - Diverticulitis [Unknown]
  - Hyperglycaemia [Unknown]
  - Oropharyngeal pain [Unknown]
  - Blood pressure systolic increased [Unknown]
  - Abdominal distension [Unknown]
  - Abdominal pain lower [Not Recovered/Not Resolved]
  - Constipation [Unknown]
  - Flatulence [Unknown]
  - Fatigue [Unknown]
